FAERS Safety Report 4452692-9 (Version None)
Quarter: 2004Q3

REPORT INFORMATION
  Report Type: 
  Country: None (occurrence: None)
  Receive Date: 20040813
  Receipt Date: 20040525
  Transmission Date: 20050211
  Serious: No
  Sender: FDA-Public Use
  Company Number: S04-USA-03794-01

PATIENT
  Age: 82 Year
  Sex: Female

DRUGS (15)
  1. NAMENDA [Suspect]
     Indication: DEMENTIA ALZHEIMER'S TYPE
     Dosage: 5 MG QD PO
     Route: 048
     Dates: start: 20040301, end: 20040301
  2. NAMENDA [Suspect]
     Indication: DEMENTIA ALZHEIMER'S TYPE
     Dosage: 5 MG BID PO
     Route: 048
     Dates: start: 20040301, end: 20040301
  3. NAMENDA [Suspect]
     Indication: DEMENTIA ALZHEIMER'S TYPE
     Dosage: 10 MG QAM PO
     Route: 048
     Dates: start: 20040301, end: 20040301
  4. NAMENDA [Suspect]
     Indication: DEMENTIA ALZHEIMER'S TYPE
     Dosage: 5 MG QHS PO
     Route: 048
     Dates: start: 20040301, end: 20040301
  5. NAMENDA [Suspect]
     Indication: DEMENTIA ALZHEIMER'S TYPE
     Dosage: 10 MG BID PO
     Route: 048
     Dates: start: 20040301
  6. ARICEPT [Concomitant]
  7. ZYPREXA [Concomitant]
  8. LEXAPRO [Concomitant]
  9. XANAX [Concomitant]
  10. ADALAT [Concomitant]
  11. SPIRONOLACTONE W/ HYDROCHLOROTHIAZIDE [Concomitant]
  12. DIOVAN [Concomitant]
  13. TOPROL-XL [Concomitant]
  14. CATAPRES-TTS-1 [Concomitant]
  15. ZOCOR [Concomitant]

REACTIONS (1)
  - BURNING SENSATION [None]
